FAERS Safety Report 4411105-3 (Version None)
Quarter: 2004Q2

REPORT INFORMATION
  Report Type: 
  Country: None (occurrence: None)
  Receive Date: 20040630
  Receipt Date: 20040421
  Transmission Date: 20050107
  Serious: No
  Sender: FDA-Public Use
  Company Number: 04P-163-0258234-00

PATIENT
  Age: 59 Year
  Sex: Female
  Weight: 80.7403 kg

DRUGS (9)
  1. HUMIRA [Suspect]
     Indication: RHEUMATOID ARTHRITIS
     Dosage: 40 MG, 1 IN 2 WK, SUBCUTANEOUS
     Route: 058
     Dates: start: 20040201
  2. CIPROFLOXACIN [Suspect]
     Indication: SINUSITIS
     Dosage: 500 MG, 2 IN 1 D, PER ORAL
     Route: 048
     Dates: start: 20040414, end: 20040417
  3. FUROSEMIDE [Concomitant]
  4. METHOTREXATE SODIUM [Concomitant]
  5. PANTOPRAZOLE [Concomitant]
  6. DICLOFENAC [Concomitant]
  7. AMLODIPINE BESYLATE [Concomitant]
  8. FOLIC ACID [Concomitant]
  9. SIMVASTATIN [Concomitant]

REACTIONS (5)
  - APPETITE DISORDER [None]
  - ASTHENIA [None]
  - NERVOUSNESS [None]
  - SINUSITIS [None]
  - WHITE BLOOD CELL COUNT INCREASED [None]
